FAERS Safety Report 6609211-8 (Version None)
Quarter: 2010Q1

REPORT INFORMATION
  Report Type: 
  Country: None (occurrence: None)
  Receive Date: 20100224
  Receipt Date: 20100208
  Transmission Date: 20100710
  Serious: Yes (Life-Threatening)
  Sender: FDA-Public Use
  Company Number: TPA2010A00573

PATIENT
  Age: 52 Year
  Sex: Female
  Weight: 92.5338 kg

DRUGS (7)
  1. KAPIDEX  (DEXLANSOPRAZOLE) [Suspect]
     Indication: GASTROOESOPHAGEAL REFLUX DISEASE
     Dosage: 60 MG, 1 IN 1 D, PER ORAL
     Route: 048
     Dates: start: 20091224, end: 20091224
  2. TREXIMET [Concomitant]
  3. XANAX [Concomitant]
  4. UNIVASC [Concomitant]
  5. CRESTOR [Concomitant]
  6. ACTPLUS MET [Concomitant]
  7. SYNTHROID [Concomitant]

REACTIONS (3)
  - ANAPHYLACTIC SHOCK [None]
  - LOSS OF CONSCIOUSNESS [None]
  - PALLOR [None]
